FAERS Safety Report 5879544-1 (Version None)
Quarter: 2008Q3

REPORT INFORMATION
  Report Type: 
  Country: None (occurrence: None)
  Receive Date: 20080911
  Receipt Date: 20080911
  Transmission Date: 20090109
  Serious: Yes (Other)
  Sender: FDA-Public Use
  Company Number: None

PATIENT
  Age: 39 Year
  Sex: Female
  Weight: 60.3284 kg

DRUGS (1)
  1. TYSABRI [Suspect]
     Indication: MULTIPLE SCLEROSIS
     Dosage: 300 MG EVERY FOUR WEEKS IV
     Route: 042
     Dates: start: 20080710, end: 20080904

REACTIONS (6)
  - ERYTHEMA [None]
  - FLUSHING [None]
  - HEADACHE [None]
  - NAUSEA [None]
  - TEARFULNESS [None]
  - THROAT TIGHTNESS [None]
